FAERS Safety Report 6737439-5 (Version None)
Quarter: 2010Q2

REPORT INFORMATION
  Report Type: 
  Country: None (occurrence: None)
  Receive Date: 20100524
  Receipt Date: 20100512
  Transmission Date: 20101027
  Serious: Yes (Hospitalization, Other)
  Sender: FDA-Public Use
  Company Number: US-BAYER-201010010NA

PATIENT
  Age: 25 Year
  Sex: Female

DRUGS (4)
  1. YAZ [Suspect]
     Indication: DRUG USE FOR UNKNOWN INDICATION
     Route: 048
     Dates: start: 20020901, end: 20051001
  2. YAZ [Suspect]
     Route: 048
     Dates: start: 20071001, end: 20091001
  3. YASMIN [Suspect]
     Indication: DRUG USE FOR UNKNOWN INDICATION
     Route: 048
     Dates: start: 20071001, end: 20091001
  4. YASMIN [Suspect]
     Route: 048
     Dates: start: 20020901, end: 20051001

REACTIONS (1)
  - CHOLECYSTECTOMY [None]
